FAERS Safety Report 16847906 (Version 2)
Quarter: 2019Q4

REPORT INFORMATION
  Report Type: Spontaneous
  Country: MX (occurrence: MX)
  Receive Date: 20190924
  Receipt Date: 20191003
  Transmission Date: 20200122
  Serious: Yes (Life-Threatening, Hospitalization, Other)
  Sender: FDA-Public Use
  Company Number: MX-BAXTER-2019BAX018420

PATIENT
  Age: 1 Year
  Sex: Male

DRUGS (16)
  1. UROMITEXAN [Suspect]
     Active Substance: MESNA
     Indication: NATURAL KILLER-CELL LEUKAEMIA
     Dosage: MESNA (500 MG/M2/IV DOSE EVERY 6 HRS)?MIED PROTOCOL
     Route: 042
  2. METHOTREXATE. [Suspect]
     Active Substance: METHOTREXATE
     Indication: NATURAL KILLER-CELL LEUKAEMIA
     Dosage: HIGH DOSES OF METHOTREXATE (5,000 MG/M2/DAY, 24 HRS INFUSION IV ON DAY ONE)?MIED PROTOCOL
     Route: 042
  3. METHOTREXATE. [Suspect]
     Active Substance: METHOTREXATE
     Dosage: HIGH DOSES OF METHOTREXATE (5,000 MG/M2/DAY, 24 HRS INFUSION IV ON DAY ONE)?SMILE PROTOCOL
     Route: 042
  4. DEXAMETHASONE. [Suspect]
     Active Substance: DEXAMETHASONE
     Indication: NATURAL KILLER-CELL LEUKAEMIA
     Dosage: DEXAMETHASONE (40 MG/M2/DOSE EVERY 8 HRS. FOR 12 IV DOSES, STARTING ON DAY ONE?MIED PROTOCOL
     Route: 042
  5. DEXAMETHASONE. [Suspect]
     Active Substance: DEXAMETHASONE
     Dosage: DEXAMETHASONE (40 MG/M2/DOSE EVERY 8 HRS ON DAYS 2-4?SMILE PROTOCOL
     Route: 042
  6. GLUCOSE [Concomitant]
     Active Substance: DEXTROSE
     Indication: TUMOUR LYSIS SYNDROME
     Dosage: HYPERHYDRATION SOLUTIONS
     Route: 065
  7. UROMITEXAN [Suspect]
     Active Substance: MESNA
     Dosage: MESNA (500 MG/M2/IV DOSE EVERY 6 HRS)?SMILE PROTOCOL
     Route: 042
  8. ETOPOSIDE. [Suspect]
     Active Substance: ETOPOSIDE
     Dosage: ETOPOSIDE (100 MG/M2/DAY IN 3 HRS. ON DAYS 2-4 IV)?SMILE PROTOCOL
     Route: 042
  9. L ASPARAGINASE [Suspect]
     Active Substance: ASPARAGINASE
     Indication: NATURAL KILLER-CELL LEUKAEMIA
     Dosage: L-ASPARAGINASE (6,000 IU/M2 ON DAYS 8, 10, 12, 14, 16, 18 AND 20)
     Route: 065
  10. IFOSFAMIDE. [Suspect]
     Active Substance: IFOSFAMIDE
     Dosage: IFOSFAMIDE (1500 MG/M2/DAY IN 1 HR INFUSION ON DAYS 2-4?SMILE PROTOCOL
     Route: 042
  11. SODIUM BICARBONATE. [Concomitant]
     Active Substance: SODIUM BICARBONATE
     Indication: TUMOUR LYSIS SYNDROME
     Dosage: HYPER HYDRATION SOLUTIONS
     Route: 065
  12. IFOSFAMIDE. [Suspect]
     Active Substance: IFOSFAMIDE
     Indication: NATURAL KILLER-CELL LEUKAEMIA
     Dosage: IFOSFAMIDE (2,000 MG/M2/DAY IN 1 HR ON DAYS 2-4?MIED PROTOCOL
     Route: 065
  13. FOLINIC ACID [Suspect]
     Active Substance: LEUCOVORIN
     Indication: NATURAL KILLER-CELL LEUKAEMIA
     Dosage: FOLINIC ACID (15 MG/M2/DOSE, STARTING AT HOUR 36 OF METHOTREXATE FOR FIVE IV DOSES)?MIED PROTOCOL
     Route: 042
  14. FOLINIC ACID [Suspect]
     Active Substance: LEUCOVORIN
     Dosage: FOLINIC ACID (15 MG/M2/DOSE, STARTING AT HOUR 36 OF METHOTREXATE FOR FIVE IV DOSES)?SMILE PROTOCOL
     Route: 042
  15. ETOPOSIDE. [Suspect]
     Active Substance: ETOPOSIDE
     Indication: NATURAL KILLER-CELL LEUKAEMIA
     Dosage: ETOPOSIDE (200 MG/M2/DAY IN 3 HRS. ON DAYS 2-4 IV)?MIED PROTOCOL
     Route: 042
  16. ALLOPURINOL. [Concomitant]
     Active Substance: ALLOPURINOL
     Indication: TUMOUR LYSIS SYNDROME
     Route: 065

REACTIONS (3)
  - Pancytopenia [Unknown]
  - Septic shock [Unknown]
  - Haematotoxicity [Unknown]
